FAERS Safety Report 25802909 (Version 1)
Quarter: 2025Q3

REPORT INFORMATION
  Report Type: Spontaneous
  Country: US (occurrence: US)
  Receive Date: 20250915
  Receipt Date: 20250915
  Transmission Date: 20251020
  Serious: No
  Sender: BAYER HEALTHCARE PHARMACEUTICALS INC.
  Company Number: US-BAYER-2025A121367

PATIENT
  Age: 28 Year
  Sex: Female

DRUGS (3)
  1. MIRENA [Suspect]
     Active Substance: LEVONORGESTREL
     Indication: Heavy menstrual bleeding
     Dosage: 20?G/DAY
     Route: 015
     Dates: start: 202304
  2. MIRENA [Suspect]
     Active Substance: LEVONORGESTREL
     Indication: Intrauterine contraception
  3. DUPIXENT [Concomitant]
     Active Substance: DUPILUMAB
     Route: 030

REACTIONS (2)
  - Injection site swelling [Recovered/Resolved]
  - Injection site erythema [Not Recovered/Not Resolved]

NARRATIVE: CASE EVENT DATE: 20250901
